FAERS Safety Report 21387258 (Version 1)
Quarter: 2022Q3

REPORT INFORMATION
  Report Type: Report from Study
  Country: FR (occurrence: None)
  Receive Date: 20220928
  Receipt Date: 20220928
  Transmission Date: 20221027
  Serious: Yes (Hospitalization)
  Sender: FDA-Public Use
  Company Number: FR-Eisai Medical Research-EC-2022-121299

PATIENT
  Age: 69 Year
  Sex: Male
  Weight: 100 kg

DRUGS (24)
  1. LENVATINIB [Suspect]
     Active Substance: LENVATINIB
     Indication: Clear cell renal cell carcinoma
     Route: 048
     Dates: start: 20211129, end: 20220809
  2. LENVATINIB [Suspect]
     Active Substance: LENVATINIB
     Route: 048
     Dates: start: 20220816
  3. PEMBROLIZUMAB [Suspect]
     Active Substance: PEMBROLIZUMAB
     Indication: Clear cell renal cell carcinoma
     Route: 041
     Dates: start: 20211129, end: 20220627
  4. PEMBROLIZUMAB [Suspect]
     Active Substance: PEMBROLIZUMAB
     Route: 041
     Dates: start: 20220809, end: 20220809
  5. BELZUTIFAN [Suspect]
     Active Substance: BELZUTIFAN
     Indication: Clear cell renal cell carcinoma
     Route: 048
     Dates: start: 20211129, end: 20220809
  6. BELZUTIFAN [Suspect]
     Active Substance: BELZUTIFAN
     Route: 048
     Dates: start: 20220826, end: 2022
  7. FLECAINIDE ACETATE [Concomitant]
     Active Substance: FLECAINIDE ACETATE
     Dates: start: 201101, end: 202208
  8. HYZAAR [Concomitant]
     Active Substance: HYDROCHLOROTHIAZIDE\LOSARTAN POTASSIUM
     Dates: start: 200601
  9. FEBUXOSTAT [Concomitant]
     Active Substance: FEBUXOSTAT
     Dates: start: 200601
  10. SILODOSIN [Concomitant]
     Active Substance: SILODOSIN
     Dates: start: 20211004
  11. TADALAFIL [Concomitant]
     Active Substance: TADALAFIL
     Dates: start: 20211004
  12. ACETAMINOPHEN [Concomitant]
     Active Substance: ACETAMINOPHEN
     Dates: start: 20211213
  13. FLUOROURACIL [Concomitant]
     Active Substance: FLUOROURACIL
     Dates: start: 20211130
  14. NICARDIPINE HYDROCHLORIDE [Concomitant]
     Active Substance: NICARDIPINE HYDROCHLORIDE
     Dates: start: 20211221
  15. ALPRAZOLAM [Concomitant]
     Active Substance: ALPRAZOLAM
     Dates: start: 20211221
  16. MORPHINE SULFATE [Concomitant]
     Active Substance: MORPHINE SULFATE
     Dates: start: 20211221
  17. LOPERAMIDE HYDROCHLORIDE [Concomitant]
     Active Substance: LOPERAMIDE HYDROCHLORIDE
     Dates: start: 202205
  18. MONTMORILLONITE [Concomitant]
     Active Substance: MONTMORILLONITE
     Dates: start: 202205
  19. LEVOTHYROXINE SODIUM [Concomitant]
     Active Substance: LEVOTHYROXINE SODIUM
     Dates: start: 20220627
  20. ACETAMINOPHEN\OPIUM [Concomitant]
     Active Substance: ACETAMINOPHEN\OPIUM
     Dates: start: 20220719
  21. PHLOROGLUCINOL [Concomitant]
     Active Substance: PHLOROGLUCINOL
     Dates: start: 202208
  22. TRIMEBUTINE MALEATE [Concomitant]
     Active Substance: TRIMEBUTINE MALEATE
     Dates: start: 202208
  23. AMLODIPINE [Concomitant]
     Active Substance: AMLODIPINE BESYLATE
     Dates: start: 200601, end: 20220809
  24. PERINDOPRIL [Concomitant]
     Active Substance: PERINDOPRIL
     Dates: start: 200601, end: 20220809

REACTIONS (2)
  - Cardiac dysfunction [Recovered/Resolved]
  - Bacterial diarrhoea [Recovered/Resolved]

NARRATIVE: CASE EVENT DATE: 20220809
